FAERS Safety Report 6705403-8 (Version None)
Quarter: 2010Q2

REPORT INFORMATION
  Report Type: 
  Country: None (occurrence: None)
  Receive Date: 20100503
  Receipt Date: 20100423
  Transmission Date: 20101027
  Serious: Yes (Hospitalization)
  Sender: FDA-Public Use
  Company Number: US-BIOGENIDEC-2010BI011008

PATIENT
  Age: 54 Year
  Sex: Female
  Weight: 88 kg

DRUGS (2)
  1. AVONEX [Suspect]
     Indication: MULTIPLE SCLEROSIS
     Route: 030
     Dates: end: 20100312
  2. AVONEX [Suspect]
     Route: 030
     Dates: start: 20100402

REACTIONS (4)
  - FALL [None]
  - FATIGUE [None]
  - MENTAL IMPAIRMENT [None]
  - MULTIPLE SCLEROSIS RELAPSE [None]
